FAERS Safety Report 6210609-0 (Version None)
Quarter: 2009Q2

REPORT INFORMATION
  Report Type: 
  Country: None (occurrence: None)
  Receive Date: 20090601
  Receipt Date: 20090526
  Transmission Date: 20091009
  Serious: Yes (Hospitalization)
  Sender: FDA-Public Use
  Company Number: CA-BRISTOL-MYERS SQUIBB COMPANY-14642458

PATIENT
  Age: 79 Year
  Sex: Male

DRUGS (7)
  1. BARACLUDE [Suspect]
     Indication: HEPATITIS B
     Route: 048
     Dates: start: 20080901
  2. ASPIRIN [Suspect]
  3. LOPRESSOR [Concomitant]
  4. PANTOPRAZOLE SODIUM [Concomitant]
  5. PAROXETINE HCL [Concomitant]
  6. SPIRONOLACTONE [Concomitant]
  7. IRON SUPPLEMENT [Concomitant]

REACTIONS (2)
  - GASTRIC HAEMORRHAGE [None]
  - POLYNEUROPATHY [None]
